FAERS Safety Report 24940889 (Version 2)
Quarter: 2025Q1

REPORT INFORMATION
  Report Type: Report from Study
  Country: MY (occurrence: MY)
  Receive Date: 20250207
  Receipt Date: 20250213
  Transmission Date: 20250408
  Serious: No
  Sender: DR REDDYS
  Company Number: MY-MYS-MYS/2025/01/001532

PATIENT
  Age: 65 Year
  Sex: Male

DRUGS (3)
  1. SEVELAMER CARBONATE [Suspect]
     Active Substance: SEVELAMER CARBONATE
     Indication: Hypophosphataemia
     Route: 048
     Dates: start: 20250123
  2. Cardiprin [Concomitant]
     Indication: Product used for unknown indication
     Route: 065
  3. CLOPIDOGREL [Concomitant]
     Active Substance: CLOPIDOGREL BISULFATE
     Indication: Product used for unknown indication
     Route: 065

REACTIONS (1)
  - Product use in unapproved indication [Unknown]
